FAERS Safety Report 7122063-5 (Version None)
Quarter: 2010Q4

REPORT INFORMATION
  Report Type: 
  Country: None (occurrence: None)
  Receive Date: 20101124
  Receipt Date: 20101117
  Transmission Date: 20110411
  Serious: Yes (Other)
  Sender: FDA-Public Use
  Company Number: B0685799A

PATIENT
  Age: 48 Year
  Sex: Female
  Weight: 80 kg

DRUGS (4)
  1. CELSENTRI [Suspect]
     Indication: ASYMPTOMATIC HIV INFECTION
     Dosage: 300MG PER DAY
     Route: 048
     Dates: start: 20101029, end: 20101030
  2. PREZISTA [Concomitant]
     Indication: ASYMPTOMATIC HIV INFECTION
     Dosage: 400MG PER DAY
     Route: 048
  3. NORVIR [Concomitant]
     Indication: ASYMPTOMATIC HIV INFECTION
     Dosage: 100MG TWICE PER DAY
     Route: 048
  4. ZIAGEN [Concomitant]
     Indication: ASYMPTOMATIC HIV INFECTION
     Dosage: 600MG PER DAY
     Route: 048

REACTIONS (3)
  - PRURITUS [None]
  - RASH [None]
  - URTICARIA [None]
